FAERS Safety Report 9523506 (Version 1)
Quarter: 2013Q3

REPORT INFORMATION
  Report Type: Spontaneous
  Country: US (occurrence: US)
  Receive Date: 20130913
  Receipt Date: 20130913
  Transmission Date: 20140515
  Serious: No
  Sender: FDA-Public Use
  Company Number: US-TEVA-432529USA

PATIENT
  Age: 37 Year
  Sex: Female
  Weight: 69.01 kg

DRUGS (3)
  1. PLAN B ONE-STEP [Suspect]
     Indication: POST COITAL CONTRACEPTION
     Dosage: 1.5 MILLIGRAM DAILY;
     Route: 048
     Dates: start: 20130908, end: 20130908
  2. VITAMINS [Concomitant]
     Indication: SUPPLEMENTATION THERAPY
  3. OMEGA 3 [Concomitant]
     Indication: SUPPLEMENTATION THERAPY

REACTIONS (1)
  - Menstruation irregular [Recovered/Resolved]
